FAERS Safety Report 19510136 (Version 1)
Quarter: 2021Q3

REPORT INFORMATION
  Report Type: Spontaneous
  Country: IS (occurrence: IS)
  Receive Date: 20210708
  Receipt Date: 20210708
  Transmission Date: 20211014
  Serious: Yes (Life-Threatening, Hospitalization, Other)
  Sender: FDA-Public Use
  Company Number: IS-ELI_LILLY_AND_COMPANY-IS202107003398

PATIENT
  Age: 58 Year
  Sex: Male

DRUGS (5)
  1. ZOPLICONE [Concomitant]
     Active Substance: ZOPICLONE
     Indication: SLEEP DISORDER
     Dosage: UNK, UNKNOWN
     Route: 065
  2. OLANZAPINE. [Suspect]
     Active Substance: OLANZAPINE
     Indication: BIPOLAR I DISORDER
     Dosage: UNK, UNKNOWN
     Route: 065
  3. PROPRANOLOL [Concomitant]
     Active Substance: PROPRANOLOL HYDROCHLORIDE
     Indication: TREMOR
     Dosage: UNK, UNKNOWN
     Route: 065
  4. LITHIUM. [Suspect]
     Active Substance: LITHIUM
     Indication: BIPOLAR I DISORDER
     Dosage: UNK, UNKNOWN
     Route: 065
  5. CHLORPROTHIXENE [Suspect]
     Active Substance: CHLORPROTHIXENE
     Indication: BIPOLAR I DISORDER
     Dosage: UNK, UNKNOWN
     Route: 065

REACTIONS (7)
  - Nephrogenic diabetes insipidus [Unknown]
  - Toxicity to various agents [Unknown]
  - Acute kidney injury [Unknown]
  - Extrapyramidal disorder [Recovered/Resolved]
  - Urine output increased [Unknown]
  - Neuroleptic malignant syndrome [Recovered/Resolved]
  - Dehydration [Unknown]
